FAERS Safety Report 23074193 (Version 17)
Quarter: 2024Q4

REPORT INFORMATION
  Report Type: Report from Study
  Country: DE (occurrence: DE)
  Receive Date: 20231017
  Receipt Date: 20241220
  Transmission Date: 20250115
  Serious: No
  Sender: ROCHE
  Company Number: DE-ROCHE-3440043

PATIENT
  Age: 52 Year
  Sex: Female
  Weight: 100 kg

DRUGS (11)
  1. OCREVUS [Suspect]
     Active Substance: OCRELIZUMAB
     Indication: Relapsing multiple sclerosis
     Route: 042
     Dates: start: 20201007, end: 20201021
  2. OCREVUS [Suspect]
     Active Substance: OCRELIZUMAB
     Route: 042
     Dates: start: 20210526, end: 20210526
  3. OCREVUS [Suspect]
     Active Substance: OCRELIZUMAB
     Dosage: MOST RECENT DOSE RECEIVED ON 16/FEB/2022
     Route: 042
     Dates: start: 20220216
  4. MELOXICAM [Concomitant]
     Active Substance: MELOXICAM
     Indication: Ankylosing spondylitis
     Route: 048
     Dates: start: 200703
  5. AMITRIPTYLINE [Concomitant]
     Active Substance: AMITRIPTYLINE
     Indication: Sleep disorder
     Route: 048
     Dates: start: 20211015
  6. PANTOPRAZOLE SODIUM [Concomitant]
     Active Substance: PANTOPRAZOLE SODIUM
     Indication: Gastrointestinal disorder prophylaxis
     Route: 048
     Dates: start: 20211015
  7. CHOLECALCIFEROL [Concomitant]
     Active Substance: CHOLECALCIFEROL
     Indication: Vitamin D deficiency
     Route: 048
     Dates: start: 202003, end: 20211014
  8. CHOLECALCIFEROL [Concomitant]
     Active Substance: CHOLECALCIFEROL
     Route: 048
     Dates: start: 20211015
  9. FOLIC ACID [Concomitant]
     Active Substance: FOLIC ACID
     Indication: Iron deficiency
     Route: 048
     Dates: start: 202003
  10. TOLPERISONE [Concomitant]
     Active Substance: TOLPERISONE
     Indication: Ankylosing spondylitis
     Route: 048
     Dates: start: 20211015
  11. AMITRIPTYLINE [Concomitant]
     Active Substance: AMITRIPTYLINE
     Indication: Sleep disorder
     Route: 048
     Dates: start: 20211015

REACTIONS (13)
  - Ankylosing spondylitis [Recovered/Resolved]
  - Lipoma [Recovered/Resolved]
  - Polyp [Recovered/Resolved]
  - Lymphopenia [Unknown]
  - C-reactive protein [Unknown]
  - Throat irritation [Recovered/Resolved]
  - Headache [Recovered/Resolved]
  - Glomerular filtration rate increased [Unknown]
  - Blood cholesterol increased [Unknown]
  - Rectal polyp [Recovered/Resolved]
  - Iron deficiency anaemia [Unknown]
  - COVID-19 [Recovered/Resolved]
  - Nasopharyngitis [Recovered/Resolved]

NARRATIVE: CASE EVENT DATE: 20201014
